FAERS Safety Report 7285286-0 (Version None)
Quarter: 2011Q1

REPORT INFORMATION
  Report Type: 
  Country: None (occurrence: None)
  Receive Date: 20110210
  Receipt Date: 20110203
  Transmission Date: 20110831
  Serious: Yes (Hospitalization)
  Sender: FDA-Public Use
  Company Number: NL-GENZYME-MOZO-1000383

PATIENT
  Sex: Female
  Weight: 93 kg

DRUGS (2)
  1. MOZOBIL [Suspect]
     Indication: NON-HODGKIN'S LYMPHOMA
  2. MOZOBIL [Suspect]
     Indication: HAEMATOPOIETIC STEM CELL MOBILISATION
     Dosage: 1.2 ML, UNK
     Route: 065
     Dates: start: 20100816, end: 20100817

REACTIONS (1)
  - PYREXIA [None]
